FAERS Safety Report 6262197-0 (Version None)
Quarter: 2009Q3

REPORT INFORMATION
  Report Type: 
  Country: None (occurrence: None)
  Receive Date: 20090709
  Receipt Date: 20090626
  Transmission Date: 20100115
  Serious: Yes (Hospitalization)
  Sender: FDA-Public Use
  Company Number: JP-MERCK-0906USA00368

PATIENT
  Age: 77 Year
  Sex: Male

DRUGS (10)
  1. PEPCID RPD [Suspect]
     Indication: GASTRIC ULCER
     Route: 048
     Dates: end: 20090527
  2. BLOPRESS [Concomitant]
     Route: 065
  3. LORELCO [Suspect]
     Route: 048
     Dates: end: 20090527
  4. NORVASC [Concomitant]
     Route: 065
  5. PREDNISOLONE [Concomitant]
     Route: 065
  6. ITRIZOLE [Concomitant]
     Route: 065
  7. BONALON [Concomitant]
     Route: 065
  8. ZYLORIC [Suspect]
     Route: 048
     Dates: end: 20090527
  9. SULTANOL [Concomitant]
     Route: 065
  10. FLUTICASONE PROPIONATE AND SALMETEROL XINAFOATE [Concomitant]
     Route: 065

REACTIONS (1)
  - RHABDOMYOLYSIS [None]
